FAERS Safety Report 5150430-8 (Version None)
Quarter: 2006Q4

REPORT INFORMATION
  Report Type: 
  Country: None (occurrence: None)
  Receive Date: 20061114
  Receipt Date: 20061013
  Transmission Date: 20070319
  Serious: Yes (Death, Life-Threatening, Hospitalization)
  Sender: FDA-Public Use
  Company Number: ITWYE233616OCT06

PATIENT
  Sex: Female

DRUGS (3)
  1. ENBREL [Suspect]
     Indication: RHEUMATOID ARTHRITIS
     Route: 058
     Dates: start: 20060501, end: 20060801
  2. MEDROL [Concomitant]
     Dosage: NOT PROVIDED
     Dates: start: 20040901, end: 20060101
  3. CHLOROQUINE PHOSPHATE [Concomitant]
     Dosage: NOT PROVIDED
     Dates: start: 20040901, end: 20060101

REACTIONS (3)
  - PULMONARY TUBERCULOSIS [None]
  - RESPIRATORY FAILURE [None]
  - SEPTIC SHOCK [None]
